FAERS Safety Report 25766597 (Version 1)
Quarter: 2025Q3

REPORT INFORMATION
  Report Type: Spontaneous
  Country: CN (occurrence: CN)
  Receive Date: 20250905
  Receipt Date: 20250905
  Transmission Date: 20251021
  Serious: Yes (Other)
  Sender: NOVARTIS
  Company Number: CN-002147023-NVSC2025CN136332

PATIENT
  Age: 60 Year
  Sex: Male
  Weight: 67.8 kg

DRUGS (2)
  1. TASIGNA [Suspect]
     Active Substance: NILOTINIB
     Indication: Chronic leukaemia
     Dosage: 300 MG, BID
     Route: 048
     Dates: start: 20220428
  2. TASIGNA [Suspect]
     Active Substance: NILOTINIB
     Dosage: UNK, BID (0.3)
     Route: 048
     Dates: start: 202406, end: 20250808

REACTIONS (6)
  - Myocardial necrosis marker increased [Recovering/Resolving]
  - Myocardial injury [Unknown]
  - Total cholesterol/HDL ratio increased [Unknown]
  - Low density lipoprotein increased [Unknown]
  - Myoglobin blood increased [Unknown]
  - Blood triglycerides increased [Unknown]

NARRATIVE: CASE EVENT DATE: 20250626
